FAERS Safety Report 12109199 (Version 1)
Quarter: 2016Q1

REPORT INFORMATION
  Report Type: Spontaneous
  Country: US (occurrence: None)
  Receive Date: 20160222
  Receipt Date: 20160222
  Transmission Date: 20160526
  Serious: Yes (Other)
  Sender: FDA-Public Use
  Company Number: None

PATIENT
  Age: 25 Year
  Sex: Female
  Weight: 72.58 kg

DRUGS (2)
  1. PARAGARD T 380A [Suspect]
     Active Substance: COPPER
     Dates: start: 20121010, end: 20150930
  2. HERBAL TEAS [Concomitant]
     Active Substance: HERBALS

REACTIONS (4)
  - Complication of device removal [None]
  - Muscle spasms [None]
  - Device breakage [None]
  - Menorrhagia [None]

NARRATIVE: CASE EVENT DATE: 20150930
